FAERS Safety Report 5033292-9 (Version None)
Quarter: 2006Q2

REPORT INFORMATION
  Report Type: 
  Country: None (occurrence: None)
  Receive Date: 20060515
  Receipt Date: 20060411
  Transmission Date: 20061013
  Serious: No
  Sender: FDA-Public Use
  Company Number: S06-USA-01466-01

PATIENT
  Age: 86 Year
  Sex: Female

DRUGS (10)
  1. NAMENDA [Suspect]
     Indication: DEMENTIA ALZHEIMER'S TYPE
     Dosage: 5 MG QD PO
     Route: 048
     Dates: start: 20060101, end: 20060101
  2. LEXAPRO [Suspect]
     Indication: DEPRESSION
     Dosage: 10 MG QD PO
     Route: 048
  3. ZOCOR [Concomitant]
  4. LEVOXYL [Concomitant]
  5. LANOXIN [Concomitant]
  6. K-DUR 10 [Concomitant]
  7. COREG [Concomitant]
  8. VICODIN [Concomitant]
  9. PREVACID [Concomitant]
  10. LASIX [Concomitant]

REACTIONS (4)
  - ABDOMINAL PAIN [None]
  - DIARRHOEA [None]
  - NAUSEA [None]
  - VOMITING [None]
